FAERS Safety Report 8709168 (Version 2)
Quarter: 2013Q4

REPORT INFORMATION
  Report Type: Spontaneous
  Country: US (occurrence: US)
  Receive Date: 20120806
  Receipt Date: 20131031
  Transmission Date: 20140711
  Serious: No
  Sender: FDA-Public Use
  Company Number: US-009507513-2012SP008902

PATIENT
  Age: 69 Year
  Sex: Female
  Weight: 72.58 kg

DRUGS (3)
  1. CORICIDIN II COUGH AND COLD [Suspect]
     Indication: HEADACHE
     Dosage: 1 DF, BID
     Route: 048
     Dates: start: 201202
  2. CORICIDIN II COUGH AND COLD [Suspect]
     Indication: RHINORRHOEA
  3. CORICIDIN II COUGH AND COLD [Suspect]
     Indication: UPPER RESPIRATORY TRACT CONGESTION

REACTIONS (1)
  - Nasal dryness [Recovered/Resolved]
